FAERS Safety Report 10264912 (Version 1)
Quarter: 2014Q2

REPORT INFORMATION
  Report Type: Spontaneous
  Country: US (occurrence: US)
  Receive Date: 20140627
  Receipt Date: 20140627
  Transmission Date: 20141212
  Serious: Yes (Hospitalization)
  Sender: FDA-Public Use
  Company Number: US-BAYER-2014-095194

PATIENT
  Age: 24 Year
  Sex: Female

DRUGS (4)
  1. YAZ [Suspect]
  2. MACRODANTIN [Concomitant]
     Indication: URINARY TRACT INFECTION
  3. DOXYCYCLINE [Concomitant]
     Indication: CHLAMYDIAL INFECTION
  4. MACROBID [Concomitant]

REACTIONS (1)
  - Pulmonary embolism [None]
